FAERS Safety Report 20125981 (Version 2)
Quarter: 2021Q4

REPORT INFORMATION
  Report Type: Report from Study
  Country: CA (occurrence: CA)
  Receive Date: 20211129
  Receipt Date: 20211223
  Transmission Date: 20220303
  Serious: Yes (Other)
  Sender: FDA-Public Use
  Company Number: CA-ABBVIE-20K-028-3382198-00

PATIENT
  Sex: Female

DRUGS (1)
  1. HUMIRA [Suspect]
     Active Substance: ADALIMUMAB
     Indication: Rheumatoid arthritis
     Route: 058
     Dates: start: 20180125

REACTIONS (15)
  - Breast cancer [Recovering/Resolving]
  - Systemic lupus erythematosus [Unknown]
  - Contusion [Recovered/Resolved]
  - Urinary tract infection [Unknown]
  - Pain in extremity [Recovered/Resolved]
  - Muscular weakness [Unknown]
  - Decreased appetite [Unknown]
  - Asthenia [Unknown]
  - Breast engorgement [Not Recovered/Not Resolved]
  - Breast pain [Unknown]
  - Injection site pain [Unknown]
  - Arthralgia [Unknown]
  - Middle insomnia [Unknown]
  - Pain in extremity [Unknown]
  - Skin laceration [Unknown]

NARRATIVE: CASE EVENT DATE: 20200101
